FAERS Safety Report 6227111-2 (Version None)
Quarter: 2009Q2

REPORT INFORMATION
  Report Type: 
  Country: None (occurrence: None)
  Receive Date: 20090612
  Receipt Date: 20090527
  Transmission Date: 20091009
  Serious: No
  Sender: FDA-Public Use
  Company Number: US-ABBOTT-09P-163-0576580-00

PATIENT
  Weight: 119.86 kg

DRUGS (14)
  1. HUMIRA [Suspect]
     Indication: RHEUMATOID ARTHRITIS
     Route: 058
     Dates: start: 20080301
  2. FUROSEMIDE [Concomitant]
     Indication: DRUG USE FOR UNKNOWN INDICATION
  3. SIMVASTATIN [Concomitant]
     Indication: DRUG USE FOR UNKNOWN INDICATION
  4. FLEXERIL [Concomitant]
     Indication: DRUG USE FOR UNKNOWN INDICATION
  5. LIDODERM [Concomitant]
     Indication: DRUG USE FOR UNKNOWN INDICATION
  6. FENTANYL [Concomitant]
     Indication: DRUG USE FOR UNKNOWN INDICATION
     Route: 062
  7. RELAPHEN [Concomitant]
     Indication: DRUG USE FOR UNKNOWN INDICATION
  8. XANAX [Concomitant]
     Indication: DRUG USE FOR UNKNOWN INDICATION
  9. ROXYCODONE [Concomitant]
     Indication: DRUG USE FOR UNKNOWN INDICATION
  10. TOPROL-XL [Concomitant]
     Indication: DRUG USE FOR UNKNOWN INDICATION
  11. ESTRADIOL [Concomitant]
     Indication: DRUG USE FOR UNKNOWN INDICATION
  12. OMEPRAZOLE [Concomitant]
     Indication: DRUG USE FOR UNKNOWN INDICATION
  13. AMBIEN [Concomitant]
     Indication: DRUG USE FOR UNKNOWN INDICATION
  14. CITALOPRAM [Concomitant]
     Indication: DRUG USE FOR UNKNOWN INDICATION

REACTIONS (9)
  - ARTHRALGIA [None]
  - BLOOD IRON DECREASED [None]
  - LUNG DISORDER [None]
  - OBESITY [None]
  - PAIN IN EXTREMITY [None]
  - PNEUMONIA [None]
  - RASH MACULAR [None]
  - RASH PAPULAR [None]
  - URINARY TRACT INFECTION [None]
